FAERS Safety Report 21806729 (Version 2)
Quarter: 2023Q1

REPORT INFORMATION
  Report Type: Spontaneous
  Country: US (occurrence: US)
  Receive Date: 20230102
  Receipt Date: 20230111
  Transmission Date: 20230417
  Serious: Yes (Other)
  Sender: FDA-Public Use
  Company Number: US-ABBVIE-4254709

PATIENT
  Age: 38 Year
  Sex: Female
  Weight: 80.739 kg

DRUGS (10)
  1. LUPRON DEPOT [Suspect]
     Active Substance: LEUPROLIDE ACETATE
     Indication: Prophylaxis
     Dosage: SEEAED
     Route: 030
     Dates: start: 20221201, end: 20221201
  2. LUPRON DEPOT [Suspect]
     Active Substance: LEUPROLIDE ACETATE
     Indication: Surgical preconditioning
     Route: 030
     Dates: start: 20221101, end: 20221101
  3. LUPRON DEPOT [Suspect]
     Active Substance: LEUPROLIDE ACETATE
     Indication: Endometriosis
  4. ELIQUIS [Suspect]
     Active Substance: APIXABAN
     Indication: Deep vein thrombosis
     Dosage: 2 TABLET?SEEAED
     Route: 048
     Dates: start: 20221213, end: 20221220
  5. ELIQUIS [Suspect]
     Active Substance: APIXABAN
     Indication: Deep vein thrombosis
     Dosage: 1 TABLET?SEEAED
     Route: 048
     Dates: start: 20221221
  6. VITAMIN D [Concomitant]
     Active Substance: VITAMIN D NOS
     Indication: Product used for unknown indication
     Dosage: FORM STRENGTH: 50000 IU (INTERNATIONAL UNIT)
     Dates: end: 20221212
  7. PROVIGIL [Concomitant]
     Active Substance: MODAFINIL
     Indication: Fatigue
     Dosage: FORM STRENGTH: 37.5 MILLIGRAM
     Dates: end: 20221212
  8. Glutathione  SR [Concomitant]
     Indication: Liver operation
     Dates: end: 20221212
  9. VITAMIN B12 [Concomitant]
     Active Substance: CYANOCOBALAMIN
     Indication: Product used for unknown indication
     Dosage: FORM STRENGTH: 1 MILLIGRAM
     Route: 058
     Dates: end: 20221212
  10. TYLENOL [Concomitant]
     Active Substance: ACETAMINOPHEN
     Indication: Burning sensation
     Dates: start: 202212

REACTIONS (19)
  - Deep vein thrombosis [Not Recovered/Not Resolved]
  - Myalgia [Recovered/Resolved]
  - Heart rate increased [Recovered/Resolved]
  - Burning sensation [Not Recovered/Not Resolved]
  - Laboratory test abnormal [Not Recovered/Not Resolved]
  - Transient ischaemic attack [Recovered/Resolved]
  - Adenomyosis [Not Recovered/Not Resolved]
  - Headache [Recovered/Resolved]
  - Thrombosis [Not Recovered/Not Resolved]
  - Hot flush [Not Recovered/Not Resolved]
  - Off label use [Not Recovered/Not Resolved]
  - Night sweats [Not Recovered/Not Resolved]
  - Pain in extremity [Not Recovered/Not Resolved]
  - Hypertension [Recovered/Resolved]
  - Loss of libido [Not Recovered/Not Resolved]
  - Joint lock [Recovering/Resolving]
  - Insomnia [Not Recovered/Not Resolved]
  - Pain [Not Recovered/Not Resolved]
  - Aphasia [Recovered/Resolved]

NARRATIVE: CASE EVENT DATE: 20221101
